FAERS Safety Report 11049477 (Version 1)
Quarter: 2015Q2

REPORT INFORMATION
  Report Type: Spontaneous
  Country: JP (occurrence: JP)
  Receive Date: 20150420
  Receipt Date: 20150420
  Transmission Date: 20150821
  Serious: No
  Sender: FDA-Public Use
  Company Number: JP-B.I. PHARMACEUTICALS,INC./RIDGEFIELD-2015-BI-20881NB

PATIENT
  Age: 85 Year
  Sex: Female

DRUGS (7)
  1. LENDORMIN D [Concomitant]
     Active Substance: BROTIZOLAM
     Indication: INSOMNIA
     Route: 048
     Dates: start: 20130805
  2. GLUBES [Concomitant]
     Active Substance: MITIGLINIDE CALCIUM HYDRATE\VOGLIBOSE
     Indication: DIABETES MELLITUS
     Route: 048
     Dates: start: 20150203
  3. LIVALO [Concomitant]
     Active Substance: PITAVASTATIN CALCIUM
     Indication: DYSLIPIDAEMIA
     Route: 048
     Dates: start: 20120701
  4. TRAZENTA [Suspect]
     Active Substance: LINAGLIPTIN
     Indication: DIABETES MELLITUS
     Dosage: 5 MG
     Route: 048
     Dates: start: 20150212
  5. MICARDIS [Concomitant]
     Active Substance: TELMISARTAN
     Indication: HYPERTENSION
     Route: 048
     Dates: start: 20120701
  6. BISOPROLOL [Concomitant]
     Active Substance: BISOPROLOL
     Indication: HYPERTENSION
     Route: 048
     Dates: start: 20130805
  7. YOUAJYL [Concomitant]
     Indication: CEREBRAL INFARCTION
     Route: 048
     Dates: start: 20120701

REACTIONS (3)
  - Swelling face [Recovered/Resolved]
  - Peripheral swelling [Recovered/Resolved]
  - Feeling abnormal [Recovered/Resolved]

NARRATIVE: CASE EVENT DATE: 20150214
